FAERS Safety Report 20602917 (Version 2)
Quarter: 2022Q1

REPORT INFORMATION
  Report Type: Spontaneous
  Country: US (occurrence: US)
  Receive Date: 20220316
  Receipt Date: 20220322
  Transmission Date: 20220423
  Serious: Yes (Other)
  Sender: FDA-Public Use
  Company Number: US-PFIZER INC-202200411388

PATIENT
  Age: 66 Year
  Sex: Male
  Weight: 81.65 kg

DRUGS (7)
  1. PRISTIQ EXTENDED-RELEASE [Suspect]
     Active Substance: DESVENLAFAXINE SUCCINATE
     Indication: Depression
     Dosage: 50 MG, DAILY (50MG EXTENDED RELEASE DAILY)
     Dates: start: 202111
  2. PRISTIQ EXTENDED-RELEASE [Suspect]
     Active Substance: DESVENLAFAXINE SUCCINATE
     Dosage: 100 MG
  3. PRISTIQ EXTENDED-RELEASE [Suspect]
     Active Substance: DESVENLAFAXINE SUCCINATE
     Dosage: 100 MG, EVERY OTHER DAY
  4. PRISTIQ EXTENDED-RELEASE [Suspect]
     Active Substance: DESVENLAFAXINE SUCCINATE
     Dosage: 50 MG
     Dates: end: 20220302
  5. AMLODIPINE [Concomitant]
     Active Substance: AMLODIPINE BESYLATE
     Indication: Blood pressure abnormal
     Dosage: 10MG EXTENDED RELEASE DAILY
     Dates: start: 2019
  6. METOPROLOL [Concomitant]
     Active Substance: METOPROLOL
     Indication: Blood pressure abnormal
     Dosage: 100MG EXTENDED RELEASE DAILY
     Dates: start: 2019
  7. LEXAPRO [Concomitant]
     Active Substance: ESCITALOPRAM OXALATE
     Dosage: 10 MG, DAILY
     Dates: start: 2019

REACTIONS (17)
  - Drug dependence [Unknown]
  - Near death experience [Unknown]
  - Alopecia [Not Recovered/Not Resolved]
  - Feeling abnormal [Unknown]
  - Impaired driving ability [Unknown]
  - Head discomfort [Unknown]
  - Movement disorder [Unknown]
  - Headache [Unknown]
  - Dizziness [Unknown]
  - Middle insomnia [Unknown]
  - Dyspnoea [Unknown]
  - Speech disorder [Unknown]
  - Fear [Unknown]
  - Gait disturbance [Unknown]
  - Anxiety [Unknown]
  - Nervousness [Unknown]
  - Dysstasia [Unknown]

NARRATIVE: CASE EVENT DATE: 20210101
